FAERS Safety Report 23243523 (Version 3)
Quarter: 2023Q4

REPORT INFORMATION
  Report Type: Report from Study
  Country: CA (occurrence: CA)
  Receive Date: 20231130
  Receipt Date: 20231226
  Transmission Date: 20240110
  Serious: Yes (Other)
  Sender: FDA-Public Use
  Company Number: CA-JNJFOC-20231148577

PATIENT
  Age: 10 Year
  Sex: Female
  Weight: 36 kg

DRUGS (3)
  1. REMICADE [Suspect]
     Active Substance: INFLIXIMAB
     Indication: Colitis ulcerative
     Dosage: THE PATIENT WAS CANCELLED 17-NOV-2023^S APPOINTMENT, AND REBOOKED FOR 25-NOV-2023.
     Route: 041
     Dates: start: 20220903
  2. REMICADE [Suspect]
     Active Substance: INFLIXIMAB
     Route: 041
  3. REMICADE [Suspect]
     Active Substance: INFLIXIMAB
     Route: 041

REACTIONS (5)
  - Infusion related reaction [Recovered/Resolved]
  - Nasopharyngitis [Unknown]
  - Drug level decreased [Unknown]
  - Abdominal discomfort [Recovered/Resolved]
  - Nausea [Recovered/Resolved]

NARRATIVE: CASE EVENT DATE: 20231124
